FAERS Safety Report 14814556 (Version 1)
Quarter: 2018Q2

REPORT INFORMATION
  Report Type: Spontaneous
  Country: US (occurrence: US)
  Receive Date: 20180426
  Receipt Date: 20180426
  Transmission Date: 20180711
  Serious: Yes (Hospitalization, Other)
  Sender: FDA-Public Use
  Company Number: US-TORRENT-00006099

PATIENT
  Age: 49 Year
  Sex: Female

DRUGS (7)
  1. RISPERIDONE. [Interacting]
     Active Substance: RISPERIDONE
     Indication: SCHIZOAFFECTIVE DISORDER BIPOLAR TYPE
     Dosage: RISPERIDONE 4 MG NIGHTLY,
  2. BENZTROPINE MESILATE [Suspect]
     Active Substance: BENZTROPINE MESYLATE
     Indication: SCHIZOAFFECTIVE DISORDER BIPOLAR TYPE
     Dosage: BENZTRO-?PINE 2 MG TWO TIMES A DAY (BID),
  3. CLOZAPINE. [Interacting]
     Active Substance: CLOZAPINE
     Indication: SCHIZOAFFECTIVE DISORDER BIPOLAR TYPE
     Dosage: 500 MG NIGHTLY,
  4. SERTRALINE [Suspect]
     Active Substance: SERTRALINE HYDROCHLORIDE
     Indication: SCHIZOAFFECTIVE DISORDER BIPOLAR TYPE
     Dosage: UNKNOWN
  5. VALPROIC ACID. [Interacting]
     Active Substance: VALPROIC ACID
     Indication: SCHIZOAFFECTIVE DISORDER BIPOLAR TYPE
     Dosage: 1250 MG NIGHTLY,
  6. HALOPERIDOL. [Suspect]
     Active Substance: HALOPERIDOL
     Indication: SCHIZOAFFECTIVE DISORDER BIPOLAR TYPE
     Dosage: UNKNOWN
  7. OLANZAPINE. [Suspect]
     Active Substance: OLANZAPINE
     Indication: SCHIZOAFFECTIVE DISORDER BIPOLAR TYPE
     Dosage: UNKNOWN

REACTIONS (10)
  - Atrial fibrillation [Recovered/Resolved]
  - Pneumonia aspiration [Recovered/Resolved]
  - Sedation [Recovered/Resolved]
  - Off label use [Unknown]
  - Salivary hypersecretion [Recovered/Resolved]
  - Hypotension [Recovered/Resolved]
  - Therapeutic response decreased [Unknown]
  - Drug interaction [Unknown]
  - Drug level increased [Unknown]
  - Sepsis [Recovered/Resolved]
